FAERS Safety Report 18130553 (Version 1)
Quarter: 2020Q3

REPORT INFORMATION
  Report Type: Spontaneous
  Country: CN (occurrence: CN)
  Receive Date: 20200810
  Receipt Date: 20200810
  Transmission Date: 20201103
  Serious: Yes (Hospitalization)
  Sender: FDA-Public Use
  Company Number: CN-EMD SERONO-9179170

PATIENT
  Age: 80 Year
  Sex: Female
  Weight: 62 kg

DRUGS (2)
  1. GLUCOPHAGE [Suspect]
     Active Substance: METFORMIN HYDROCHLORIDE
     Indication: DIABETIC COMPLICATION
     Route: 048
     Dates: start: 20190710, end: 20200623
  2. NOVORAPID [Suspect]
     Active Substance: INSULIN ASPART
     Indication: DIABETIC COMPLICATION
     Route: 058
     Dates: start: 20190710, end: 20200623

REACTIONS (1)
  - Hypoglycaemic coma [Recovering/Resolving]

NARRATIVE: CASE EVENT DATE: 20200623
